FAERS Safety Report 19261573 (Version 3)
Quarter: 2022Q1

REPORT INFORMATION
  Report Type: Spontaneous
  Country: US (occurrence: US)
  Receive Date: 20210515
  Receipt Date: 20220202
  Transmission Date: 20220423
  Serious: Yes (Other)
  Sender: FDA-Public Use
  Company Number: US-TAKEDA-2021TUS031057

PATIENT

DRUGS (20)
  1. PROTONIX [Suspect]
     Active Substance: PANTOPRAZOLE SODIUM
     Indication: Gastrooesophageal reflux disease
     Dosage: 40 MILLIGRAM
     Route: 048
     Dates: start: 20071105
  2. PREVACID [Suspect]
     Active Substance: LANSOPRAZOLE
     Indication: Gastrooesophageal reflux disease
     Dosage: 30 MILLIGRAM
     Route: 048
     Dates: start: 20090227
  3. NEXIUM [Suspect]
     Active Substance: ESOMEPRAZOLE MAGNESIUM
     Indication: Gastrooesophageal reflux disease
     Dosage: 40 MILLIGRAM
     Route: 048
     Dates: start: 20090303, end: 20091222
  4. OMEPRAZOLE [Suspect]
     Active Substance: OMEPRAZOLE
     Indication: Gastrooesophageal reflux disease
     Dosage: 20 MILLIGRAM
     Route: 048
     Dates: start: 20071107
  5. ZEGERID [Suspect]
     Active Substance: OMEPRAZOLE\SODIUM BICARBONATE
     Indication: Gastrooesophageal reflux disease
     Dosage: 1100 MILLIGRAM
     Route: 048
     Dates: start: 20090129
  6. TRIAMTERENE [Concomitant]
     Active Substance: TRIAMTERENE
     Indication: Diuretic therapy
     Dosage: UNK
     Dates: start: 20071005, end: 20091228
  7. LIPITOR [Concomitant]
     Active Substance: ATORVASTATIN CALCIUM
     Indication: Blood cholesterol abnormal
     Dosage: UNK
     Dates: start: 20070821, end: 20091228
  8. AMOXICILLIN [Concomitant]
     Active Substance: AMOXICILLIN
     Indication: Infection
     Dosage: UNK
     Dates: start: 20071119, end: 20091104
  9. LISINOPRIL [Concomitant]
     Active Substance: LISINOPRIL
     Indication: Blood pressure increased
     Dosage: UNK
     Dates: start: 20071204, end: 20091231
  10. MELOXICAM [Concomitant]
     Active Substance: MELOXICAM
     Indication: Pain
     Dosage: UNK
     Dates: start: 20090123, end: 20090518
  11. AZITHROMYCIN [Concomitant]
     Active Substance: AZITHROMYCIN
     Indication: Infection
     Dosage: UNK
     Dates: start: 20190803
  12. ASPIRIN [Concomitant]
     Active Substance: ASPIRIN
     Indication: Cardiac disorder
     Dosage: UNK MILLIGRAM
     Dates: start: 20090309
  13. AXID [Concomitant]
     Active Substance: NIZATIDINE
     Dosage: UNK
  14. ZANTAC [Concomitant]
     Active Substance: RANITIDINE HYDROCHLORIDE
     Dosage: UNK
  15. TAGAMET [Concomitant]
     Active Substance: CIMETIDINE
     Dosage: UNK
  16. ALKA-SELTZER [Concomitant]
     Active Substance: ANHYDROUS CITRIC ACID\ASPIRIN\SODIUM BICARBONATE
     Indication: Antacid therapy
     Dosage: UNK
  17. PEPTO-BISMOL [Concomitant]
     Active Substance: BISMUTH SUBSALICYLATE
     Indication: Antacid therapy
     Dosage: UNK
  18. ROLAIDS [Concomitant]
     Active Substance: CALCIUM CARBONATE\MAGNESIUM HYDROXIDE
     Indication: Antacid therapy
     Dosage: UNK
  19. RANITIDINE HYDROCHLORIDE [Concomitant]
     Active Substance: RANITIDINE HYDROCHLORIDE
     Dosage: UNK
  20. CIMETIDINE [Concomitant]
     Active Substance: CIMETIDINE
     Dosage: UNK

REACTIONS (4)
  - Chronic kidney disease [Not Recovered/Not Resolved]
  - Rebound acid hypersecretion [Unknown]
  - Acute kidney injury [Not Recovered/Not Resolved]
  - Renal failure [Unknown]
